FAERS Safety Report 13766206 (Version 1)
Quarter: 2017Q3

REPORT INFORMATION
  Report Type: Spontaneous
  Country: NL (occurrence: NL)
  Receive Date: 20170719
  Receipt Date: 20170719
  Transmission Date: 20171127
  Serious: Yes (Other)
  Sender: FDA-Public Use
  Company Number: NL-AUROBINDO-AUR-APL-2017-37325

PATIENT
  Age: 43 Year
  Sex: Female

DRUGS (1)
  1. METRONIDAZOLE 500MG FILM-COATED TABLET [Suspect]
     Active Substance: METRONIDAZOLE
     Indication: VULVOVAGINITIS
     Dosage: 500 MG, TWO TIMES A DAY
     Route: 048
     Dates: start: 20170623, end: 20170630

REACTIONS (2)
  - Pollakiuria [Recovered/Resolved]
  - Dry eye [Recovered/Resolved]

NARRATIVE: CASE EVENT DATE: 20170624
